FAERS Safety Report 9160133 (Version 2)
Quarter: 2013Q2

REPORT INFORMATION
  Report Type: Spontaneous
  Country: JP (occurrence: JP)
  Receive Date: 20130313
  Receipt Date: 20130502
  Transmission Date: 20140414
  Serious: Yes (Hospitalization)
  Sender: FDA-Public Use
  Company Number: JP-JNJFOC-20130302041

PATIENT
  Age: 78 Year
  Sex: Male

DRUGS (5)
  1. ZYRTEC [Suspect]
     Route: 048
  2. ZYRTEC [Suspect]
     Indication: RHINITIS ALLERGIC
     Dosage: INITIATED MORE THAN A YEAR AGO
     Route: 048
  3. GLACTIV [Concomitant]
     Route: 048
  4. LASIX [Concomitant]
     Route: 048
  5. ETIZOLAM [Concomitant]
     Indication: SLEEP DISORDER THERAPY
     Route: 065

REACTIONS (5)
  - Diabetes mellitus [Unknown]
  - Cardiac disorder [Unknown]
  - Urinary retention [Recovering/Resolving]
  - Enuresis [Recovering/Resolving]
  - Drug administered to patient of inappropriate age [Unknown]
